FAERS Safety Report 9398100 (Version 2)
Quarter: 2013Q4

REPORT INFORMATION
  Report Type: Spontaneous
  Country: GB (occurrence: None)
  Receive Date: 20130709
  Receipt Date: 20131112
  Transmission Date: 20140711
  Serious: Yes (Hospitalization, Other)
  Sender: FDA-Public Use
  Company Number: AUR-APL-2013-05564

PATIENT
  Age: 48 Year
  Sex: Male

DRUGS (19)
  1. QUETIAPINE [Suspect]
     Indication: BIPOLAR DISORDER
     Route: 048
     Dates: start: 20130522
  2. PREGABALIN (PREGABALIN) [Concomitant]
  3. ANGITIL XL (DILTIAZEM HYDROCHLORIDE) [Concomitant]
  4. ATORVASTATIN (ATORVASTATIN) [Concomitant]
  5. CHLORHEXIDINE (CHLORHEXIDINE) [Concomitant]
  6. FLUTICASONE (FLUTICASONE) [Concomitant]
  7. GABAPENTIN (GABAPENTIN) [Concomitant]
  8. IBUPROFEN (IBUPROFEN) [Concomitant]
  9. LAMOTRIGINE (LAMOTRIGINE) [Concomitant]
  10. MOMETASONE (MOMETASONE) [Concomitant]
  11. MONTELUKAST (MONTELUKAST) [Concomitant]
  12. NYSTATIN (NYSTATIN) [Concomitant]
  13. OMEPRAZOLE (OMEPRAZOLE) [Concomitant]
  14. SALBUTAMOL (SALBUTAMOL) [Concomitant]
  15. SALMETEROL (SALMETEROL) [Concomitant]
  16. TOLTERODINE (TOLTERODINE) [Concomitant]
  17. TRAMADOL (TRAMADOL) [Concomitant]
  18. ZOPICLONE (ZOPICLONE) [Concomitant]
  19. ASPIRIN (ACETYLSALICYLIC ACID) [Concomitant]

REACTIONS (8)
  - Muscular weakness [None]
  - Dysarthria [None]
  - Facial paresis [None]
  - Dizziness [None]
  - Vertigo [None]
  - Vision blurred [None]
  - Dysarthria [None]
  - VIIth nerve paralysis [None]
